FAERS Safety Report 7439224-8 (Version None)
Quarter: 2011Q2

REPORT INFORMATION
  Report Type: 
  Country: None (occurrence: None)
  Receive Date: 20110427
  Receipt Date: 20110414
  Transmission Date: 20111010
  Serious: Yes (Other)
  Sender: FDA-Public Use
  Company Number: CA-BAYER-2011-032423

PATIENT
  Age: 39 Year
  Sex: Female

DRUGS (1)
  1. MIRENA [Suspect]
     Dosage: 20 ?G, UNK
     Route: 015
     Dates: start: 20110204, end: 20110413

REACTIONS (3)
  - UTERINE PERFORATION [None]
  - GASTRIC PERFORATION [None]
  - MEDICAL DEVICE COMPLICATION [None]
